FAERS Safety Report 5195288-6 (Version None)
Quarter: 2006Q4

REPORT INFORMATION
  Report Type: 
  Country: None (occurrence: None)
  Receive Date: 20061229
  Receipt Date: 20061206
  Transmission Date: 20070319
  Serious: Yes (Life-Threatening, Other)
  Sender: FDA-Public Use
  Company Number: JP-PFIZER INC-2006150557

PATIENT
  Sex: Male
  Weight: 20 kg

DRUGS (7)
  1. GABAPEN [Suspect]
     Indication: EPILEPSY
     Route: 048
     Dates: start: 20061129, end: 20061206
  2. ALEVIATIN [Concomitant]
  3. CLOBAZAM [Concomitant]
     Route: 048
     Dates: start: 20020308
  4. EPILEO PETIT MAL [Concomitant]
     Route: 048
     Dates: start: 19990401
  5. HALOPERIDOL [Concomitant]
     Indication: DYSKINESIA
     Route: 048
     Dates: start: 19990907
  6. CYANOCOBALAMIN [Concomitant]
     Indication: SLEEP DISORDER
     Route: 048
     Dates: start: 20030805
  7. QVAR 40 [Concomitant]
     Indication: ASTHMA
     Route: 055

REACTIONS (1)
  - CARDIO-RESPIRATORY ARREST [None]
